FAERS Safety Report 18118855 (Version 1)
Quarter: 2020Q3

REPORT INFORMATION
  Report Type: Spontaneous
  Country: DE (occurrence: DE)
  Receive Date: 20200806
  Receipt Date: 20200806
  Transmission Date: 20201103
  Serious: Yes (Death, Life-Threatening, Hospitalization, Other)
  Sender: FDA-Public Use
  Company Number: DE-TEVA-2020-DE-1809493

PATIENT
  Age: 79 Year
  Sex: Female
  Weight: 60 kg

DRUGS (11)
  1. DEXAMETHASON [Concomitant]
     Active Substance: DEXAMETHASONE
     Indication: ANAL CANCER
  2. MITOMYCIN. [Suspect]
     Active Substance: MITOMYCIN
     Indication: RADIOTHERAPY
     Dosage: 10 MG / M  CORRESPONDING TO 17.86 OVER 15 MINUTES. (EXTERNAL ONCOLOGY. PRACTICE)
     Route: 042
     Dates: start: 20200608, end: 20200717
  3. MITOMYCIN. [Suspect]
     Active Substance: MITOMYCIN
     Indication: ANAL CANCER
  4. 5?FLUOROURACIL [Suspect]
     Active Substance: FLUOROURACIL
     Indication: ANAL CANCER
     Dosage: 1 G / M  CORRESPONDS TO 1786.5 MG ABSOLUTE VIA IV PUMP
     Route: 042
     Dates: start: 20200608, end: 20200717
  5. MITOMYCIN. [Suspect]
     Active Substance: MITOMYCIN
     Indication: CHEMOTHERAPY
  6. DEXAMETHASON [Concomitant]
     Active Substance: DEXAMETHASONE
     Indication: RADIOTHERAPY
     Dates: start: 202006
  7. 5?FLUOROURACIL [Suspect]
     Active Substance: FLUOROURACIL
     Indication: RADIOTHERAPY
  8. CARBIMAZOL [Concomitant]
     Active Substance: CARBIMAZOLE
     Indication: GOITRE
  9. CARBIMAZOL [Concomitant]
     Active Substance: CARBIMAZOLE
     Indication: HYPERTHYROIDISM
     Dates: start: 202002, end: 20200722
  10. 5?FLUOROURACIL [Suspect]
     Active Substance: FLUOROURACIL
     Indication: CHEMOTHERAPY
  11. DEXAMETHASON [Concomitant]
     Active Substance: DEXAMETHASONE
     Indication: CHEMOTHERAPY

REACTIONS (2)
  - Gastrointestinal necrosis [Fatal]
  - Neutropenic sepsis [Fatal]

NARRATIVE: CASE EVENT DATE: 20200718
